FAERS Safety Report 9483564 (Version 2)
Quarter: 2013Q3

REPORT INFORMATION
  Report Type: Report from Study
  Country: US (occurrence: US)
  Receive Date: 20130828
  Receipt Date: 20130830
  Transmission Date: 20140515
  Serious: No
  Sender: FDA-Public Use
  Company Number: US-ROCHE-1265652

PATIENT
  Sex: Male
  Weight: 93.07 kg

DRUGS (33)
  1. RITUXAN [Suspect]
     Indication: FABRY^S DISEASE
     Route: 065
  2. FABRAZYME [Suspect]
     Indication: FABRY^S DISEASE
     Route: 065
  3. ACETAMINOPHEN [Concomitant]
     Route: 048
  4. AGALSIDASE BETA [Concomitant]
     Dosage: ONCE
     Route: 042
  5. ALBUTEROL [Concomitant]
     Dosage: 1 PUFF ^RT^ ONCE
     Route: 065
  6. BACITRACIN [Concomitant]
     Route: 061
  7. CETIRIZINE [Concomitant]
     Route: 048
  8. CETIRIZINE [Concomitant]
     Route: 048
     Dates: end: 20120808
  9. CLOPIDOGREL [Concomitant]
     Route: 048
  10. DRONABINOL [Concomitant]
     Route: 048
  11. DRONABINOL [Concomitant]
     Dosage: TAKES 2 TABS
     Route: 065
  12. DULOXETINE [Concomitant]
     Route: 048
  13. EPINEPHRINE [Concomitant]
     Dosage: ONCE
     Route: 042
  14. FAMOTIDINE [Concomitant]
     Dosage: ONCE
     Route: 042
  15. GABAPENTIN [Concomitant]
     Route: 048
     Dates: end: 20120808
  16. HEPARIN [Concomitant]
     Dosage: UNITS
     Route: 058
  17. LISINOPRIL [Concomitant]
     Route: 048
  18. LISINOPRIL [Concomitant]
     Route: 048
     Dates: start: 20120808
  19. METHYLPREDNISOLONE [Concomitant]
     Dosage: ONCE
     Route: 042
  20. MONTELUKAST [Concomitant]
     Dosage: NIGHTLY
     Route: 048
  21. NORTRIPTYLINE [Concomitant]
     Dosage: NIGHTLY
     Route: 048
     Dates: start: 20120808
  22. PREDNISONE [Concomitant]
     Route: 048
  23. CYCLOBENZAPRINE [Concomitant]
     Dosage: AS NEEDED; TAKE 1/2 TO 1 TABLET
     Route: 065
  24. NABUMETONE [Concomitant]
     Route: 048
  25. CODEINE [Concomitant]
     Route: 048
  26. ZYRTEC [Concomitant]
  27. SINGULAIR [Concomitant]
  28. CYMBALTA [Concomitant]
     Route: 048
  29. DOXEPIN [Concomitant]
     Dosage: 25 MG - 50 MG
     Route: 048
     Dates: start: 20120911
  30. EPIPEN [Concomitant]
     Route: 030
     Dates: start: 20130808
  31. FLEXERIL (UNITED STATES) [Concomitant]
     Route: 048
     Dates: start: 20120808
  32. MARINOL (UNITED STATES) [Concomitant]
     Route: 048
     Dates: end: 20120808
  33. PLAVIX [Concomitant]
     Route: 048
     Dates: start: 20120808

REACTIONS (9)
  - Weight fluctuation [Unknown]
  - Joint stiffness [Unknown]
  - Throat irritation [Unknown]
  - Urticaria [Unknown]
  - Pruritus [Unknown]
  - Rash [Unknown]
  - Cough [Unknown]
  - Arthralgia [Unknown]
  - Rash macular [Unknown]
